FAERS Safety Report 9858081 (Version 2)
Quarter: 2014Q1

REPORT INFORMATION
  Report Type: Spontaneous
  Country: US (occurrence: US)
  Receive Date: 20140131
  Receipt Date: 20140326
  Transmission Date: 20141002
  Serious: No
  Sender: FDA-Public Use
  Company Number: US-PFIZER INC-2014025723

PATIENT
  Age: 41 Year
  Sex: Female

DRUGS (2)
  1. ADVIL [Suspect]
     Indication: SLEEP DISORDER
     Dosage: UNK, AS NEEDED
     Dates: start: 201401
  2. ADVIL [Suspect]
     Indication: RESTLESS LEGS SYNDROME

REACTIONS (2)
  - Drug ineffective for unapproved indication [Unknown]
  - Abdominal discomfort [Unknown]
